FAERS Safety Report 8121723-7 (Version None)
Quarter: 2012Q1

REPORT INFORMATION
  Report Type: 
  Country: None (occurrence: None)
  Receive Date: 20120208
  Receipt Date: 20120206
  Transmission Date: 20120608
  Serious: Yes (Hospitalization, Other)
  Sender: FDA-Public Use
  Company Number: CA-BAYER-2012-012146

PATIENT
  Age: 53 Year
  Sex: Male

DRUGS (1)
  1. SORAFENIB (RAF KINASE INHIBITOR) [Suspect]
     Indication: HEPATIC NEOPLASM MALIGNANT
     Dosage: 400 MG, BID
     Route: 048
     Dates: start: 20110121

REACTIONS (4)
  - INTERNATIONAL NORMALISED RATIO INCREASED [None]
  - PAIN [None]
  - BLOOD BILIRUBIN INCREASED [None]
  - ASCITES [None]
